FAERS Safety Report 5441414-0 (Version None)
Quarter: 2007Q3

REPORT INFORMATION
  Report Type: 
  Country: None (occurrence: None)
  Receive Date: 20070828
  Receipt Date: 20070828
  Transmission Date: 20080115
  Serious: Yes (Life-Threatening)
  Sender: FDA-Public Use
  Company Number: None

PATIENT
  Sex: Female
  Weight: 68.0396 kg

DRUGS (1)
  1. REMICADE [Suspect]
     Indication: ARTHRITIS
     Dosage: 500 MG Q 6 WEEKS  IV
     Route: 042
     Dates: start: 20020613, end: 20070614

REACTIONS (1)
  - LUNG NEOPLASM MALIGNANT [None]
